FAERS Safety Report 24250483 (Version 1)
Quarter: 2024Q3

REPORT INFORMATION
  Report Type: Spontaneous
  Country: US (occurrence: None)
  Receive Date: 20240824
  Receipt Date: 20240824
  Transmission Date: 20241017
  Serious: No
  Sender: Public
  Company Number: None

PATIENT
  Age: 65 Year
  Sex: Female
  Weight: 82.8 kg

DRUGS (3)
  1. XARELTO [Suspect]
     Active Substance: RIVAROXABAN
     Indication: Atrial fibrillation
     Dosage: OTHER QUANTITY : 1 TABLET(S);?FREQUENCY : DAILY;?
     Route: 048
  2. Protonics [Concomitant]
  3. XARELTO [Concomitant]
     Active Substance: RIVAROXABAN

REACTIONS (9)
  - Gastrointestinal disorder [None]
  - Abdominal distension [None]
  - Pain [None]
  - Gastrointestinal pain [None]
  - Chest pain [None]
  - Palpitations [None]
  - Gastrooesophageal reflux disease [None]
  - Dizziness [None]
  - Fatigue [None]
